FAERS Safety Report 6423309-9 (Version None)
Quarter: 2009Q4

REPORT INFORMATION
  Report Type: 
  Country: None (occurrence: None)
  Receive Date: 20091102
  Receipt Date: 20091024
  Transmission Date: 20100525
  Serious: Yes (Other)
  Sender: FDA-Public Use
  Company Number: US-PFIZER INC-2006066526

PATIENT
  Sex: Female
  Weight: 74.83 kg

DRUGS (8)
  1. XALATAN [Suspect]
     Indication: GLAUCOMA
     Dosage: 1 DROP=1.5UG IN EACH EYE AT BEDTIME
     Route: 047
     Dates: start: 20060202
  2. LOTREL [Concomitant]
     Indication: BLOOD PRESSURE INCREASED
  3. TRICOR [Concomitant]
     Indication: BLOOD CHOLESTEROL INCREASED
  4. TRICOR [Concomitant]
     Indication: BLOOD TRIGLYCERIDES INCREASED
  5. ZIAC [Concomitant]
     Indication: CARDIAC DISORDER
  6. STARLIX [Concomitant]
     Indication: DIABETES MELLITUS
     Dates: start: 20020101
  7. PLAVIX [Concomitant]
     Indication: ANGIOPATHY
     Dates: start: 20030101
  8. ACIPHEX [Concomitant]
     Indication: OESOPHAGITIS

REACTIONS (9)
  - ATRIOVENTRICULAR BLOCK [None]
  - BLOOD GLUCOSE INCREASED [None]
  - CORONARY ARTERY OCCLUSION [None]
  - DRUG ADMINISTRATION ERROR [None]
  - EAR DISORDER [None]
  - FEAR [None]
  - HEARING IMPAIRED [None]
  - KIDNEY INFECTION [None]
  - STRESS [None]
